FAERS Safety Report 19710810 (Version 1)
Quarter: 2021Q3

REPORT INFORMATION
  Report Type: Spontaneous
  Country: SE (occurrence: SE)
  Receive Date: 20210817
  Receipt Date: 20210817
  Transmission Date: 20211014
  Serious: Yes (Other)
  Sender: FDA-Public Use
  Company Number: SE-MYLANLABS-2021M1051301

PATIENT
  Sex: Female
  Weight: 93 kg

DRUGS (1)
  1. PARACETAMOL [Suspect]
     Active Substance: ACETAMINOPHEN
     Indication: PAIN
     Dosage: 1 DOSAGE FORM, PRN (1?2 TABLETS IF NEEDED)

REACTIONS (3)
  - Dizziness [Recovered/Resolved]
  - Respiratory arrest [Recovered/Resolved]
  - Depressed level of consciousness [Recovered/Resolved]
